FAERS Safety Report 20853715 (Version 1)
Quarter: 2022Q2

REPORT INFORMATION
  Report Type: Spontaneous
  Country: US (occurrence: None)
  Receive Date: 20220519
  Receipt Date: 20220519
  Transmission Date: 20220720
  Serious: No
  Sender: FDA-Public Use
  Company Number: None

PATIENT
  Age: 90 Year
  Sex: Male
  Weight: 73.94 kg

DRUGS (10)
  1. NINLARO [Suspect]
     Active Substance: IXAZOMIB CITRATE
     Indication: Plasma cell myeloma
     Dosage: OTHER QUANTITY : 2.3MG;?OTHER FREQUENCY : 3WEEKS ON 1 WEEK OFF;?
     Route: 048
     Dates: start: 20220511
  2. CARVEDIOLOL [Concomitant]
  3. DULOXETINE [Concomitant]
     Active Substance: DULOXETINE
  4. ELIQUIS [Concomitant]
     Active Substance: APIXABAN
  5. LACTULOSE [Concomitant]
     Active Substance: LACTULOSE
  6. LOSARTAN [Concomitant]
     Active Substance: LOSARTAN
  7. SENEXON-S [Concomitant]
     Active Substance: DOCUSATE SODIUM\SENNOSIDES A AND B
  8. SIMVASTATIN [Concomitant]
     Active Substance: SIMVASTATIN
  9. TRAMADOL [Concomitant]
     Active Substance: TRAMADOL
  10. VITAMIN D3 [Concomitant]
     Active Substance: CHOLECALCIFEROL

REACTIONS (2)
  - Adverse drug reaction [None]
  - Therapy change [None]
